FAERS Safety Report 5809112-9 (Version None)
Quarter: 2008Q3

REPORT INFORMATION
  Report Type: 
  Country: None (occurrence: None)
  Receive Date: 20080714
  Receipt Date: 20080702
  Transmission Date: 20090109
  Serious: Yes (Other)
  Sender: FDA-Public Use
  Company Number: US-PFIZER INC-2008036716

PATIENT
  Age: 19 Year
  Sex: Male

DRUGS (3)
  1. XANAX [Suspect]
  2. VALIUM [Suspect]
  3. ALL OTHER THERAPEUTIC PRODUCTS [Suspect]

REACTIONS (2)
  - ACCIDENTAL OVERDOSE [None]
  - SUBSTANCE ABUSE [None]
